FAERS Safety Report 8744019 (Version 2)
Quarter: 2012Q4

REPORT INFORMATION
  Report Type: 
  Country: US (occurrence: US)
  Receive Date: 20120824
  Receipt Date: 20121004
  Transmission Date: 20130627
  Serious: Yes (Hospitalization, Other)
  Sender: FDA-Public Use
  Company Number: US-ASTRAZENECA-2012SE57608

PATIENT
  Age: 62 Year
  Sex: Female
  Weight: 79.4 kg

DRUGS (10)
  1. NEXIUM [Suspect]
     Indication: GASTROOESOPHAGEAL REFLUX DISEASE
     Route: 048
     Dates: start: 2002
  2. PRILOSEC OTC [Suspect]
     Indication: GASTROOESOPHAGEAL REFLUX DISEASE
     Route: 048
     Dates: start: 2009, end: 2011
  3. PRILOSEC OTC [Suspect]
     Indication: GASTROOESOPHAGEAL REFLUX DISEASE
     Route: 048
     Dates: start: 2009, end: 2011
  4. DIOVAN [Concomitant]
     Indication: BLOOD PRESSURE ABNORMAL
     Dosage: DAILY
     Route: 048
  5. LIPITOR [Concomitant]
     Indication: BLOOD CHOLESTEROL ABNORMAL
     Dosage: DAILY
     Route: 048
  6. METOPROLOL [Concomitant]
     Indication: BLOOD PRESSURE ABNORMAL
     Dosage: DAILY
     Route: 048
  7. SPIRONOLACTONE [Concomitant]
     Indication: BLOOD POTASSIUM ABNORMAL
     Dosage: DAILY
     Route: 048
  8. FOLIC ACID [Concomitant]
     Indication: MEDICAL DIET
     Dosage: DAILY
     Route: 048
  9. BABY ASPIRIN [Concomitant]
     Indication: CARDIAC DISORDER
     Dosage: DAILY
     Route: 048
  10. ZEGRID [Concomitant]
     Indication: GASTROOESOPHAGEAL REFLUX DISEASE
     Dosage: DAILY
     Route: 048

REACTIONS (11)
  - Cellulitis [Unknown]
  - Blood iron decreased [Unknown]
  - Blood potassium decreased [Unknown]
  - Pneumonia aspiration [Unknown]
  - Atrioventricular block [Unknown]
  - Oedema peripheral [Unknown]
  - Aphonia [Unknown]
  - Renal impairment [Unknown]
  - Burning sensation [Unknown]
  - Dysgeusia [Unknown]
  - Intentional drug misuse [Unknown]
